FAERS Safety Report 23539412 (Version 1)
Quarter: 2024Q1

REPORT INFORMATION
  Report Type: Spontaneous
  Country: CA (occurrence: CA)
  Receive Date: 20240219
  Receipt Date: 20240219
  Transmission Date: 20240410
  Serious: Yes (Hospitalization)
  Sender: FDA-Public Use
  Company Number: CA-FreseniusKabi-FK202402618

PATIENT
  Age: 38 Year
  Sex: Female

DRUGS (2)
  1. OXYTOCIN [Suspect]
     Active Substance: OXYTOCIN
     Indication: Labour induction
     Dosage: FREQUENCY:  ONCE
     Route: 065
  2. CERVIDIL [Suspect]
     Active Substance: DINOPROSTONE
     Indication: Induced labour
     Dosage: FREQUENCY ONCE

REACTIONS (2)
  - Off label use [Unknown]
  - Therapeutic product effect incomplete [Unknown]
